FAERS Safety Report 19616226 (Version 2)
Quarter: 2021Q3

REPORT INFORMATION
  Report Type: Report from Study
  Country: US (occurrence: US)
  Receive Date: 20210727
  Receipt Date: 20210923
  Transmission Date: 20211014
  Serious: Yes (Hospitalization, Disabling, Other)
  Sender: FDA-Public Use
  Company Number: US-TAKEDA-US202000728

PATIENT
  Age: 69 Year
  Sex: Female
  Weight: 49 kg

DRUGS (25)
  1. TEDUGLUTIDE [Suspect]
     Active Substance: TEDUGLUTIDE
     Indication: SHORT-BOWEL SYNDROME
     Dosage: 2.4 MILLIGRAM (0.05 MG/KG DAILY DOSE AND 7 DOSES/WEEK) 1X/DAY:QD
     Route: 065
     Dates: start: 201709, end: 20190430
  2. TEDUGLUTIDE [Suspect]
     Active Substance: TEDUGLUTIDE
     Dosage: 2.5 MILLIGRAM (0.05 MG/KG DAILY DOSE AND 7 DOSES/WEEK) 1X/DAY:QD
     Route: 065
     Dates: start: 20190430, end: 202011
  3. TEDUGLUTIDE [Suspect]
     Active Substance: TEDUGLUTIDE
     Dosage: 2.5 MILLIGRAM (0.05 MG/KG DAILY DOSE AND 7 DOSES/WEEK) 1X/DAY:QD
     Route: 065
     Dates: start: 20190430, end: 202011
  4. TEDUGLUTIDE [Suspect]
     Active Substance: TEDUGLUTIDE
     Indication: SHORT-BOWEL SYNDROME
     Dosage: 2.4 MILLIGRAM (0.05 MG/KG DAILY DOSE AND 7 DOSES/WEEK) 1X/DAY:QD
     Route: 065
     Dates: start: 201709, end: 20190430
  5. TEDUGLUTIDE [Suspect]
     Active Substance: TEDUGLUTIDE
     Dosage: 2.500 MILLIGRAM (0.0500 MG/KG), QD
     Route: 065
     Dates: start: 20190430, end: 202011
  6. TEDUGLUTIDE [Suspect]
     Active Substance: TEDUGLUTIDE
     Dosage: 2.500 MILLIGRAM (0.0500 MG/KG), QD
     Route: 065
     Dates: start: 20190430, end: 202011
  7. TEDUGLUTIDE [Suspect]
     Active Substance: TEDUGLUTIDE
     Dosage: 2.500 MILLIGRAM (0.0500 MG/KG), 4/WEEK
     Route: 065
     Dates: start: 202011, end: 202012
  8. CYANOCOBALAMIN. [Concomitant]
     Active Substance: CYANOCOBALAMIN
     Indication: VITAMIN SUPPLEMENTATION
     Dosage: 1 MILLIGRAM
     Route: 030
     Dates: start: 2019
  9. TEDUGLUTIDE [Suspect]
     Active Substance: TEDUGLUTIDE
     Indication: SHORT-BOWEL SYNDROME
     Dosage: 2.4 MILLIGRAM (0.05 MG/KG DAILY DOSE AND 7 DOSES/WEEK) 1X/DAY:QD
     Route: 065
     Dates: start: 201709, end: 20190430
  10. URSODIOL. [Concomitant]
     Active Substance: URSODIOL
     Dosage: 1 DOSAGE FORM, BID
     Route: 048
     Dates: start: 20190227, end: 20190528
  11. TEDUGLUTIDE [Suspect]
     Active Substance: TEDUGLUTIDE
     Dosage: 2.5 MILLIGRAM (0.05 MG/KG DAILY DOSE AND 7 DOSES/WEEK) 1X/DAY:QD
     Route: 065
     Dates: start: 20190430, end: 202011
  12. TEDUGLUTIDE [Suspect]
     Active Substance: TEDUGLUTIDE
     Dosage: 2.5 MILLIGRAM (0.05 MG/KG DAILY DOSE AND 7 DOSES/WEEK) 1X/DAY:QD
     Route: 065
     Dates: start: 20190430, end: 202011
  13. TEDUGLUTIDE [Suspect]
     Active Substance: TEDUGLUTIDE
     Dosage: 2.000 MILLIGRAM (0.0500 MG/KG), QD
     Route: 065
     Dates: start: 202012
  14. GOLYTELY [Concomitant]
     Active Substance: POLYETHYLENE GLYCOL 3350\POTASSIUM CHLORIDE\SODIUM BICARBONATE\SODIUM CHLORIDE\SODIUM SULFATE
     Indication: CONSTIPATION
  15. TEDUGLUTIDE [Suspect]
     Active Substance: TEDUGLUTIDE
     Dosage: 2.500 MILLIGRAM (0.0500 MG/KG), QD
     Route: 065
     Dates: start: 20190430, end: 202011
  16. TEDUGLUTIDE [Suspect]
     Active Substance: TEDUGLUTIDE
     Dosage: 2.500 MILLIGRAM (0.0500 MG/KG), QD
     Route: 065
     Dates: start: 20190430, end: 202011
  17. TEDUGLUTIDE [Suspect]
     Active Substance: TEDUGLUTIDE
     Dosage: 2.500 MILLIGRAM (0.0500 MG/KG), 4/WEEK
     Route: 065
     Dates: start: 202011, end: 202012
  18. TEDUGLUTIDE [Suspect]
     Active Substance: TEDUGLUTIDE
     Dosage: 2.000 MILLIGRAM (0.0500 MG/KG), QD
     Route: 065
     Dates: start: 202012
  19. TEDUGLUTIDE [Suspect]
     Active Substance: TEDUGLUTIDE
     Dosage: 2.000 MILLIGRAM (0.0500 MG/KG), QD
     Route: 065
     Dates: start: 202012
  20. PROBIOTIC [BIFIDOBACTERIUM BIFIDUM;BIFIDOBACTERIUM LACTIS;BIFIDOBACTER [Concomitant]
     Indication: GASTROINTESTINAL DISORDER PROPHYLAXIS
  21. TEDUGLUTIDE [Suspect]
     Active Substance: TEDUGLUTIDE
     Indication: SHORT-BOWEL SYNDROME
     Dosage: 2.4 MILLIGRAM (0.05 MG/KG DAILY DOSE AND 7 DOSES/WEEK) 1X/DAY:QD
     Route: 065
     Dates: start: 201709, end: 20190430
  22. TEDUGLUTIDE [Suspect]
     Active Substance: TEDUGLUTIDE
     Dosage: 2.500 MILLIGRAM (0.0500 MG/KG), 4/WEEK
     Route: 065
     Dates: start: 202011, end: 202012
  23. TEDUGLUTIDE [Suspect]
     Active Substance: TEDUGLUTIDE
     Dosage: 2.500 MILLIGRAM (0.0500 MG/KG), 4/WEEK
     Route: 065
     Dates: start: 202011, end: 202012
  24. TEDUGLUTIDE [Suspect]
     Active Substance: TEDUGLUTIDE
     Dosage: 2.000 MILLIGRAM (0.0500 MG/KG), QD
     Route: 065
     Dates: start: 202012
  25. URSODIOL. [Concomitant]
     Active Substance: URSODIOL
     Indication: CHOLESTASIS
     Dosage: 1 DOSAGE FORM, BID
     Route: 048
     Dates: start: 20200423, end: 20200727

REACTIONS (2)
  - Spinal pain [Recovered/Resolved]
  - Spinal fracture [Recovered/Resolved]

NARRATIVE: CASE EVENT DATE: 20180401
